FAERS Safety Report 11646915 (Version 8)
Quarter: 2016Q2

REPORT INFORMATION
  Report Type: Report from Study
  Country: BR (occurrence: BR)
  Receive Date: 20151020
  Receipt Date: 20160407
  Transmission Date: 20160815
  Serious: Yes (Life-Threatening, Other)
  Sender: FDA-Public Use
  Company Number: PHHY2015BR134900

PATIENT
  Age: 43 Year
  Sex: Female
  Weight: 75 kg

DRUGS (9)
  1. TRILEPTAL [Suspect]
     Active Substance: OXCARBAZEPINE
     Indication: SEIZURE
     Dosage: 3 DF, QD
     Route: 048
     Dates: start: 201505
  2. CITALOPRAM [Suspect]
     Active Substance: CITALOPRAM HYDROBROMIDE
     Indication: MOOD ALTERED
  3. PROCIMAX [Suspect]
     Active Substance: CITALOPRAM HYDROBROMIDE
     Indication: ANXIETY
     Dosage: 2 MG, QD
     Route: 048
     Dates: start: 201507
  4. PROCIMAX [Suspect]
     Active Substance: CITALOPRAM HYDROBROMIDE
     Indication: DEPRESSION
  5. GARDENAL//PHENOBARBITAL [Suspect]
     Active Substance: PHENOBARBITAL
     Dosage: 1 DF, QD AT NIGHT
     Route: 048
  6. AMMONIA. [Interacting]
     Active Substance: AMMONIA
     Indication: PRODUCT USED FOR UNKNOWN INDICATION
     Route: 065
  7. LEVOID [Concomitant]
     Active Substance: LEVOTHYROXINE
     Indication: HYPOTHYROIDISM
     Dosage: 1 DF, QD
     Route: 048
     Dates: start: 2006
  8. CITALOPRAM [Suspect]
     Active Substance: CITALOPRAM HYDROBROMIDE
     Indication: DEPRESSION
     Dosage: 1 DF, QD
     Route: 048
     Dates: start: 2015
  9. GARDENAL//PHENOBARBITAL [Suspect]
     Active Substance: PHENOBARBITAL
     Indication: SEIZURE
     Dosage: 100 MG, QD
     Route: 048
     Dates: start: 2006

REACTIONS (30)
  - Weight increased [Not Recovered/Not Resolved]
  - Blister [Recovering/Resolving]
  - Muscular weakness [Not Recovered/Not Resolved]
  - Swelling face [Recovered/Resolved]
  - Pruritus [Not Recovered/Not Resolved]
  - Seizure [Recovered/Resolved]
  - Chills [Recovered/Resolved]
  - Drug interaction [Unknown]
  - Confusional state [Unknown]
  - Rhinitis [Recovering/Resolving]
  - Pyrexia [Recovered/Resolved]
  - Apparent death [Recovered/Resolved]
  - Decreased immune responsiveness [Recovered/Resolved]
  - Nasal inflammation [Unknown]
  - Crying [Recovering/Resolving]
  - Abdominal pain [Recovering/Resolving]
  - Pain [Recovering/Resolving]
  - Feeling abnormal [Unknown]
  - Wound [Recovering/Resolving]
  - Burning sensation [Recovered/Resolved]
  - Hepatomegaly [Recovering/Resolving]
  - Rhinorrhoea [Recovering/Resolving]
  - Erythema [Recovered/Resolved]
  - Nasal discomfort [Recovered/Resolved]
  - Feeling hot [Recovered/Resolved]
  - Arthralgia [Not Recovered/Not Resolved]
  - Skin irritation [Recovering/Resolving]
  - Eye pruritus [Recovered/Resolved]
  - Malaise [Unknown]
  - Blood cholesterol increased [Recovering/Resolving]

NARRATIVE: CASE EVENT DATE: 201505
